FAERS Safety Report 24288031 (Version 1)
Quarter: 2024Q3

REPORT INFORMATION
  Report Type: Spontaneous
  Country: US (occurrence: US)
  Receive Date: 20240905
  Receipt Date: 20240905
  Transmission Date: 20241016
  Serious: No
  Sender: SUNOVION
  Company Number: US-SUMITOMO PHARMA SWITZERLAND GMBH-2024SPA001263

PATIENT

DRUGS (3)
  1. GEMTESA [Suspect]
     Active Substance: VIBEGRON
     Indication: Urinary incontinence
     Dosage: 75 MG, QD
     Route: 048
     Dates: start: 202408
  2. ATORVASTATIN [Concomitant]
     Active Substance: ATORVASTATIN
     Indication: Blood cholesterol
     Dosage: 10 MG, QD (SINCE A YEAR OR TWO AGO)
     Route: 065
  3. Alginate [Concomitant]
     Indication: Osteoporosis
     Dosage: 70 MG, WEEKLY (SINCE A YEAR OR TWO AGO)
     Route: 065

REACTIONS (2)
  - Nasal congestion [Unknown]
  - Hot flush [Recovered/Resolved]

NARRATIVE: CASE EVENT DATE: 20240801
